FAERS Safety Report 11148204 (Version 4)
Quarter: 2015Q2

REPORT INFORMATION
  Report Type: Spontaneous
  Country: JP (occurrence: None)
  Receive Date: 20150527
  Receipt Date: 20150629
  Transmission Date: 20150821
  Serious: Yes (Hospitalization, Other)
  Sender: FDA-Public Use
  Company Number: 2015FE01649

PATIENT
  Age: 67 Year
  Sex: Male
  Weight: 62 kg

DRUGS (5)
  1. AMLODIPINE [Concomitant]
     Active Substance: AMLODIPINE BESYLATE
  2. BLOPRESS (CANDESARTAN CILEXETIL) [Concomitant]
     Active Substance: CANDESARTAN CILEXETIL
  3. URIEF (SILODOSIN) [Concomitant]
  4. GONAX (DEGARELIX) POWDER AND SOLVENT FOR SOLUTION FOR INJECTION [Suspect]
     Active Substance: DEGARELIX
     Indication: PROSTATE CANCER
     Route: 058
     Dates: start: 20141025, end: 20150509
  5. CASODEX [Concomitant]
     Active Substance: BICALUTAMIDE

REACTIONS (7)
  - Drug hypersensitivity [None]
  - Blood pressure decreased [None]
  - Rash [None]
  - Pruritus [None]
  - Urticaria [None]
  - Anaphylactic shock [None]
  - Depressed level of consciousness [None]

NARRATIVE: CASE EVENT DATE: 20150509
